FAERS Safety Report 19502750 (Version 1)
Quarter: 2021Q3

REPORT INFORMATION
  Report Type: Spontaneous
  Country: CA (occurrence: CA)
  Receive Date: 20210707
  Receipt Date: 20210707
  Transmission Date: 20211014
  Serious: Yes (Other)
  Sender: FDA-Public Use
  Company Number: CA-PFIZER INC-2021774527

PATIENT
  Sex: Female

DRUGS (1)
  1. FILGRASTIM [Suspect]
     Active Substance: FILGRASTIM
     Indication: HEPATIC CANCER
     Dosage: UNK
     Route: 065

REACTIONS (2)
  - Bone pain [Unknown]
  - Biliary obstruction [Unknown]
